FAERS Safety Report 19053714 (Version 1)
Quarter: 2021Q1

REPORT INFORMATION
  Report Type: Spontaneous
  Country: US (occurrence: US)
  Receive Date: 20210324
  Receipt Date: 20210324
  Transmission Date: 20210420
  Serious: Yes (Death, Other)
  Sender: FDA-Public Use
  Company Number: US-AMGEN-USASP2021041806

PATIENT

DRUGS (23)
  1. DOXORUBICIN [Concomitant]
     Active Substance: DOXORUBICIN
  2. MESNA. [Concomitant]
     Active Substance: MESNA
  3. PAZOPANIB [Concomitant]
     Active Substance: PAZOPANIB
  4. SIROLIMUS. [Concomitant]
     Active Substance: SIROLIMUS
  5. CISPLATIN. [Concomitant]
     Active Substance: CISPLATIN
  6. ZOLEDRONIC ACID [Concomitant]
     Active Substance: ZOLEDRONIC ACID
  7. AURANOFIN [Concomitant]
     Active Substance: AURANOFIN
  8. DASATINIB. [Concomitant]
     Active Substance: DASATINIB
  9. GEMCITABINE. [Concomitant]
     Active Substance: GEMCITABINE
  10. IFOSFAMIDE. [Concomitant]
     Active Substance: IFOSFAMIDE
  11. OLARATUMAB [Concomitant]
     Active Substance: OLARATUMAB
  12. TEMOZOLAMIDE [Concomitant]
     Active Substance: TEMOZOLOMIDE
  13. XGEVA [Suspect]
     Active Substance: DENOSUMAB
     Indication: SARCOMA METASTATIC
     Dosage: UNK
     Route: 065
  14. CARBOPLATIN. [Concomitant]
     Active Substance: CARBOPLATIN
  15. DACTINOMYCIN [Concomitant]
     Active Substance: DACTINOMYCIN
  16. ETOPOSIDE. [Concomitant]
     Active Substance: ETOPOSIDE
  17. PACLITAXEL. [Concomitant]
     Active Substance: PACLITAXEL
  18. RAPAMYCIN [Concomitant]
     Active Substance: SIROLIMUS
  19. TRABECTEDIN [Concomitant]
     Active Substance: TRABECTEDIN
  20. VINCRISTINE [Concomitant]
     Active Substance: VINCRISTINE
  21. DOCETAXEL. [Concomitant]
     Active Substance: DOCETAXEL
  22. IRINOTECAN [Concomitant]
     Active Substance: IRINOTECAN
  23. SORAFENIB [Concomitant]
     Active Substance: SORAFENIB

REACTIONS (6)
  - Dermatitis [Unknown]
  - Pneumonitis [Unknown]
  - Pain [Unknown]
  - Disease progression [Fatal]
  - Nausea [Unknown]
  - Off label use [Unknown]
